FAERS Safety Report 4756138-2 (Version None)
Quarter: 2005Q3

REPORT INFORMATION
  Report Type: 
  Country: None (occurrence: None)
  Receive Date: 20050830
  Receipt Date: 20050621
  Transmission Date: 20060218
  Serious: Yes (Hospitalization)
  Sender: FDA-Public Use
  Company Number: 2005SE03642

PATIENT
  Age: 426 Day
  Sex: Female
  Weight: 8.8 kg

DRUGS (1)
  1. ATACAND [Suspect]
     Route: 048
     Dates: start: 20050619, end: 20050619

REACTIONS (4)
  - ACCIDENTAL DRUG INTAKE BY CHILD [None]
  - ACCIDENTAL OVERDOSE [None]
  - BLOOD PRESSURE INCREASED [None]
  - TACHYCARDIA [None]
